FAERS Safety Report 5724392-6 (Version None)
Quarter: 2008Q2

REPORT INFORMATION
  Report Type: 
  Country: None (occurrence: None)
  Receive Date: 20080430
  Receipt Date: 20080418
  Transmission Date: 20081010
  Serious: Yes (Other)
  Sender: FDA-Public Use
  Company Number: DE-PFIZER INC-2008034542

PATIENT
  Age: 47 Year
  Sex: Female

DRUGS (4)
  1. ZELDOX (CAPSULES) [Suspect]
     Route: 048
  2. MELOXICAM [Concomitant]
  3. NOCTAMID [Concomitant]
  4. CLORAZEPATE DIPOTASSIUM [Concomitant]

REACTIONS (2)
  - CORNEAL DISORDER [None]
  - VISUAL ACUITY REDUCED [None]
